FAERS Safety Report 18498288 (Version 1)
Quarter: 2020Q4

REPORT INFORMATION
  Report Type: Spontaneous
  Country: US (occurrence: US)
  Receive Date: 20201112
  Receipt Date: 20201112
  Transmission Date: 20210114
  Serious: Yes (Life-Threatening, Hospitalization, Congenital Anomaly)
  Sender: FDA-Public Use
  Company Number: US-TEVA-2020-US-1846345

PATIENT
  Age: 1 Day
  Sex: Male

DRUGS (1)
  1. ACETAZOLAMIDE. [Suspect]
     Active Substance: ACETAZOLAMIDE
     Indication: IDIOPATHIC INTRACRANIAL HYPERTENSION
     Dosage: 1500MG/DAY IN THREE DIVIDED DOSES
     Route: 064

REACTIONS (5)
  - Metabolic acidosis [Recovered/Resolved]
  - Hypochloraemia [Recovered/Resolved]
  - Foetal exposure during pregnancy [Unknown]
  - Emphysema [Unknown]
  - Respiratory distress [Recovered/Resolved]
